FAERS Safety Report 6912822-3 (Version None)
Quarter: 2010Q3

REPORT INFORMATION
  Report Type: 
  Country: None (occurrence: None)
  Receive Date: 20100806
  Receipt Date: 20090126
  Transmission Date: 20110219
  Serious: No
  Sender: FDA-Public Use
  Company Number: US-PFIZER INC-2008151345

PATIENT
  Age: 45 Year
  Sex: Male

DRUGS (2)
  1. DILANTIN-125 [Suspect]
  2. FENTANYL CITRATE [Suspect]

REACTIONS (2)
  - BACK PAIN [None]
  - PAIN [None]
